FAERS Safety Report 9944361 (Version 1)
Quarter: 2014Q1

REPORT INFORMATION
  Report Type: Report from Study
  Country: US (occurrence: US)
  Receive Date: 20140303
  Receipt Date: 20140303
  Transmission Date: 20141002
  Serious: No
  Sender: FDA-Public Use
  Company Number: US-ABBVIE-13P-163-1050122-00

PATIENT
  Age: 42 Year
  Sex: Female

DRUGS (6)
  1. HUMIRA [Suspect]
     Indication: CROHN^S DISEASE
     Dates: start: 201211
  2. LIALDA [Concomitant]
     Indication: CROHN^S DISEASE
  3. ENTOCORT [Concomitant]
     Indication: CROHN^S DISEASE
  4. IMURAN [Concomitant]
     Indication: CROHN^S DISEASE
     Dosage: 3.5 PILLS DAILY
  5. MICROGESTIN [Concomitant]
     Indication: CONTRACEPTION
  6. SYNTHROID [Concomitant]
     Indication: HYPOTHYROIDISM

REACTIONS (3)
  - Abdominal discomfort [Not Recovered/Not Resolved]
  - Diarrhoea [Not Recovered/Not Resolved]
  - Migraine [Not Recovered/Not Resolved]
